FAERS Safety Report 5712945-0 (Version None)
Quarter: 2008Q2

REPORT INFORMATION
  Report Type: 
  Country: None (occurrence: None)
  Receive Date: 20080421
  Receipt Date: 20080421
  Transmission Date: 20081010
  Serious: Yes (Hospitalization)
  Sender: FDA-Public Use
  Company Number: None

PATIENT
  Age: 55 Year
  Sex: Male
  Weight: 89.58 kg

DRUGS (1)
  1. WARFARIN SODIUM [Suspect]
     Indication: OBSTRUCTION
     Dosage: 35 MG QWEEK PO
     Route: 048
     Dates: start: 20070802, end: 20070829

REACTIONS (4)
  - INTERNATIONAL NORMALISED RATIO INCREASED [None]
  - MUSCLE HAEMORRHAGE [None]
  - ORAL INTAKE REDUCED [None]
  - REFUSAL OF TREATMENT BY PATIENT [None]
